FAERS Safety Report 4588908-8 (Version None)
Quarter: 2005Q1

REPORT INFORMATION
  Report Type: 
  Country: None (occurrence: None)
  Receive Date: 20050216
  Receipt Date: 20050202
  Transmission Date: 20050727
  Serious: Yes (Hospitalization)
  Sender: FDA-Public Use
  Company Number: USA040874452

PATIENT
  Age: 71 Year
  Sex: Female

DRUGS (1)
  1. FORTEO [Suspect]
     Dates: start: 20040601

REACTIONS (4)
  - DEVICE FAILURE [None]
  - FALL [None]
  - INJECTION SITE HAEMORRHAGE [None]
  - WRIST FRACTURE [None]
